FAERS Safety Report 16076155 (Version 2)
Quarter: 2019Q4

REPORT INFORMATION
  Report Type: Spontaneous
  Country: US (occurrence: US)
  Receive Date: 20190315
  Receipt Date: 20191204
  Transmission Date: 20200122
  Serious: Yes (Other)
  Sender: FDA-Public Use
  Company Number: US-ASTRAZENECA-2019SE39264

PATIENT
  Age: 22973 Day
  Sex: Female

DRUGS (56)
  1. PROTONIX [Suspect]
     Active Substance: PANTOPRAZOLE SODIUM
     Route: 065
     Dates: start: 20050922, end: 20171221
  2. PROTONIX [Suspect]
     Active Substance: PANTOPRAZOLE SODIUM
     Route: 065
     Dates: start: 200808, end: 200908
  3. CYCLOBENZAPRINE. [Concomitant]
     Active Substance: CYCLOBENZAPRINE
  4. CYMBALTA [Concomitant]
     Active Substance: DULOXETINE HYDROCHLORIDE
  5. KETOROLAC TROM [Concomitant]
  6. BUMETANIDE. [Concomitant]
     Active Substance: BUMETANIDE
  7. GABAPENTIN. [Concomitant]
     Active Substance: GABAPENTIN
  8. METOPROLOL. [Concomitant]
     Active Substance: METOPROLOL
     Indication: BLOOD PRESSURE ABNORMAL
  9. LEXAPRO [Concomitant]
     Active Substance: ESCITALOPRAM OXALATE
  10. XELODA [Concomitant]
     Active Substance: CAPECITABINE
  11. TRAMACET [Concomitant]
     Active Substance: ACETAMINOPHEN\TRAMADOL
  12. VERAMYST [Concomitant]
     Active Substance: FLUTICASONE FUROATE
  13. FAMOTIDINE. [Concomitant]
     Active Substance: FAMOTIDINE
  14. NEXIUM [Suspect]
     Active Substance: ESOMEPRAZOLE MAGNESIUM
     Indication: GASTROOESOPHAGEAL REFLUX DISEASE
     Route: 048
     Dates: start: 20050922, end: 20171221
  15. HYDROXYCHLOROQUINE [Concomitant]
     Active Substance: HYDROXYCHLOROQUINE
  16. FOSAMAX [Concomitant]
     Active Substance: ALENDRONATE SODIUM
  17. LORATADINE. [Concomitant]
     Active Substance: LORATADINE
  18. FLUTICASONE. [Concomitant]
     Active Substance: FLUTICASONE
  19. ROSUVASTATIN. [Concomitant]
     Active Substance: ROSUVASTATIN
  20. PREVACID [Suspect]
     Active Substance: LANSOPRAZOLE
     Route: 065
     Dates: start: 20050922, end: 20171221
  21. PROTONIX [Suspect]
     Active Substance: PANTOPRAZOLE SODIUM
     Route: 048
     Dates: start: 20050922
  22. PIROXICAM. [Concomitant]
     Active Substance: PIROXICAM
  23. METRONIDAZOLE. [Concomitant]
     Active Substance: METRONIDAZOLE
  24. ZOLPIDEM [Concomitant]
     Active Substance: ZOLPIDEM TARTRATE
  25. IBUPROFEN. [Concomitant]
     Active Substance: IBUPROFEN
  26. CLONIDINE. [Concomitant]
     Active Substance: CLONIDINE
  27. ZYRTEC [Concomitant]
     Active Substance: CETIRIZINE HYDROCHLORIDE
  28. AVELOX [Concomitant]
     Active Substance: MOXIFLOXACIN HYDROCHLORIDE
  29. GLYCOLAX [Concomitant]
     Active Substance: POLYETHYLENE GLYCOL 3350
  30. ERYTHROMYCIN. [Concomitant]
     Active Substance: ERYTHROMYCIN
  31. LOPERAMIDE [Concomitant]
     Active Substance: LOPERAMIDE
  32. VENLAFAXINE HCL [Concomitant]
     Active Substance: VENLAFAXINE HYDROCHLORIDE
  33. LACTULOSE. [Concomitant]
     Active Substance: LACTULOSE
  34. FLUTICASONE PROP [Concomitant]
     Active Substance: FLUTICASONE PROPIONATE
  35. TRAMADOL. [Concomitant]
     Active Substance: TRAMADOL
  36. METOCLOPRAMIDE. [Concomitant]
     Active Substance: METOCLOPRAMIDE
  37. DICYCLOMINE [Concomitant]
     Active Substance: DICYCLOMINE HYDROCHLORIDE
  38. ZEGERID [Concomitant]
     Active Substance: OMEPRAZOLE\SODIUM BICARBONATE
  39. RANITIDINE. [Concomitant]
     Active Substance: RANITIDINE
  40. MONTELUKAST [Concomitant]
     Active Substance: MONTELUKAST SODIUM
  41. BONIVA [Concomitant]
     Active Substance: IBANDRONATE SODIUM
  42. ALPRAZOLAM. [Concomitant]
     Active Substance: ALPRAZOLAM
  43. APAP/CODEINE [Concomitant]
     Active Substance: ACETAMINOPHEN\CODEINE PHOSPHATE
  44. DIAZEPAM. [Concomitant]
     Active Substance: DIAZEPAM
  45. NEXIUM [Suspect]
     Active Substance: ESOMEPRAZOLE MAGNESIUM
     Indication: GASTROOESOPHAGEAL REFLUX DISEASE
     Route: 048
     Dates: start: 201308, end: 201712
  46. NEXIUM [Suspect]
     Active Substance: ESOMEPRAZOLE MAGNESIUM
     Indication: GASTROOESOPHAGEAL REFLUX DISEASE
     Route: 048
     Dates: start: 20070704
  47. PREVACID [Suspect]
     Active Substance: LANSOPRAZOLE
     Route: 048
     Dates: start: 20070119
  48. SYNTHROID [Concomitant]
     Active Substance: LEVOTHYROXINE SODIUM
     Indication: THYROID DISORDER
  49. ZOLOFT [Concomitant]
     Active Substance: SERTRALINE HYDROCHLORIDE
  50. LIMBREL [Concomitant]
     Active Substance: DIETARY SUPPLEMENT\FLAVOCOXID
  51. LEVAQUIN [Concomitant]
     Active Substance: LEVOFLOXACIN
  52. PROCHLORPERAZINE. [Concomitant]
     Active Substance: PROCHLORPERAZINE
  53. VESICARE [Concomitant]
     Active Substance: SOLIFENACIN SUCCINATE
  54. SUCRALFATE. [Concomitant]
     Active Substance: SUCRALFATE
  55. SIMVASTATIN. [Concomitant]
     Active Substance: SIMVASTATIN
  56. HYDROCHLOROTHIAZIDE. [Concomitant]
     Active Substance: HYDROCHLOROTHIAZIDE

REACTIONS (2)
  - Acute kidney injury [Unknown]
  - Chronic kidney disease [Not Recovered/Not Resolved]

NARRATIVE: CASE EVENT DATE: 20170509
